FAERS Safety Report 9820329 (Version 1)
Quarter: 2013Q4

REPORT INFORMATION
  Report Type: Spontaneous
  Country: US (occurrence: None)
  Receive Date: 20131025
  Receipt Date: 20131025
  Transmission Date: 20140711
  Serious: Yes (Other)
  Sender: FDA-Public Use
  Company Number: 2013SCPR005542

PATIENT
  Age: 34 Year
  Sex: Female
  Weight: 60.3 kg

DRUGS (1)
  1. CLOMIPHENE [Suspect]
     Indication: INFERTILITY
     Dates: start: 201209

REACTIONS (4)
  - Visual impairment [None]
  - Palpitations [None]
  - Dizziness [None]
  - Anxiety [None]
